FAERS Safety Report 18263438 (Version 1)
Quarter: 2020Q3

REPORT INFORMATION
  Report Type: Spontaneous
  Country: DE (occurrence: DE)
  Receive Date: 20200914
  Receipt Date: 20200914
  Transmission Date: 20201103
  Serious: Yes (Hospitalization, Other)
  Sender: FDA-Public Use
  Company Number: DE-009507513-2009DEU001201

PATIENT
  Age: 64 Year
  Sex: Male

DRUGS (9)
  1. METFORMIN [Concomitant]
     Active Substance: METFORMIN HYDROCHLORIDE
     Indication: TYPE 2 DIABETES MELLITUS
     Dosage: 1000MG 1?0?1
  2. LISINOPRIL. [Concomitant]
     Active Substance: LISINOPRIL
     Dosage: 1?0?0
  3. JANUVIA [Suspect]
     Active Substance: SITAGLIPTIN PHOSPHATE
     Indication: TYPE 2 DIABETES MELLITUS
     Dosage: 100 MILLIGRAM, ONCE DAILY
     Route: 048
     Dates: end: 20161123
  4. ASS 100 [Concomitant]
     Active Substance: ASPIRIN
     Dosage: 0?1?0
  5. PLAVIX [Concomitant]
     Active Substance: CLOPIDOGREL BISULFATE
     Dosage: 1?0?0
  6. REMICADE [Suspect]
     Active Substance: INFLIXIMAB
     Indication: PSORIASIS
     Dosage: 500 DOSAGE FORM
     Route: 042
     Dates: start: 20161103, end: 20161121
  7. AMLODIPINE [Concomitant]
     Active Substance: AMLODIPINE BESYLATE
     Dosage: 1?0?0
  8. PANTOZOL [Concomitant]
     Active Substance: PANTOPRAZOLE SODIUM
     Dosage: 1?0?0
  9. SIMVASTATIN. [Concomitant]
     Active Substance: SIMVASTATIN
     Dosage: 0?0?1

REACTIONS (16)
  - PO2 decreased [Unknown]
  - Glycosylated haemoglobin increased [Unknown]
  - General physical health deterioration [Unknown]
  - Blood sodium decreased [Unknown]
  - Haematocrit increased [Unknown]
  - Lymphocyte count decreased [Unknown]
  - Hypersensitivity [Recovered/Resolved]
  - Insulin C-peptide increased [Unknown]
  - PCO2 increased [Unknown]
  - Blood lactic acid increased [Unknown]
  - Diabetic metabolic decompensation [Unknown]
  - Drug ineffective [Unknown]
  - Blood glucose increased [Recovered/Resolved]
  - Glomerular filtration rate increased [Unknown]
  - Neutrophil count increased [Unknown]
  - Blood bicarbonate increased [Unknown]

NARRATIVE: CASE EVENT DATE: 201611
